FAERS Safety Report 17842928 (Version 3)
Quarter: 2020Q3

REPORT INFORMATION
  Report Type: Report from Study
  Country: US (occurrence: US)
  Receive Date: 20200530
  Receipt Date: 20200703
  Transmission Date: 20201103
  Serious: Yes (Other)
  Sender: FDA-Public Use
  Company Number: NVSC2020US149393

PATIENT
  Sex: Male

DRUGS (1)
  1. ENTRESTO [Suspect]
     Active Substance: SACUBITRIL\VALSARTAN
     Indication: CARDIAC FAILURE CHRONIC
     Dosage: UNK, BID
     Route: 048

REACTIONS (6)
  - Memory impairment [Unknown]
  - Dizziness [Unknown]
  - Haemorrhage [Unknown]
  - Limb injury [Unknown]
  - Hypotension [Unknown]
  - Bleeding time prolonged [Unknown]
